FAERS Safety Report 4590109-4 (Version None)
Quarter: 2005Q1

REPORT INFORMATION
  Report Type: 
  Country: None (occurrence: None)
  Receive Date: 20050217
  Receipt Date: 20050204
  Transmission Date: 20050727
  Serious: Yes (Hospitalization)
  Sender: FDA-Public Use
  Company Number: DSK-2005-01069

PATIENT
  Age: 72 Year
  Sex: Female

DRUGS (3)
  1. SALIGREN [Suspect]
     Indication: SJOGREN'S SYNDROME
     Dosage: 30 MG (30 MG,1 IN 1 D), PER ORAL; 60 MG (30 MG,2 IN 1 D),PER ORAL;90 MG (30 MG,3 IN 1 D),PER ORAL
     Route: 048
     Dates: start: 20011031, end: 20011211
  2. SALIGREN [Suspect]
     Indication: SJOGREN'S SYNDROME
     Dosage: 30 MG (30 MG,1 IN 1 D), PER ORAL; 60 MG (30 MG,2 IN 1 D),PER ORAL;90 MG (30 MG,3 IN 1 D),PER ORAL
     Route: 048
     Dates: start: 20011212, end: 20030909
  3. SALIGREN [Suspect]
     Indication: SJOGREN'S SYNDROME
     Dosage: 30 MG (30 MG,1 IN 1 D), PER ORAL; 60 MG (30 MG,2 IN 1 D),PER ORAL;90 MG (30 MG,3 IN 1 D),PER ORAL
     Route: 048
     Dates: start: 20030910, end: 20040628

REACTIONS (4)
  - ANAEMIA [None]
  - ANOREXIA [None]
  - DUODENAL ULCER [None]
  - TEMPERATURE INTOLERANCE [None]
